FAERS Safety Report 11808211 (Version 1)
Quarter: 2015Q4

REPORT INFORMATION
  Report Type: Spontaneous
  Country: US (occurrence: US)
  Receive Date: 20151207
  Receipt Date: 20151207
  Transmission Date: 20160305
  Serious: No
  Sender: FDA-Public Use
  Company Number: US-NOVELLABS-2015-US-000055

PATIENT
  Age: 64 Year
  Sex: Male
  Weight: 108.86 kg

DRUGS (3)
  1. POLYETHYLENE GLYCOL 3350. [Suspect]
     Active Substance: POLYETHYLENE GLYCOL 3350
     Dosage: AS NEEDED, THREE TIMES DAILY,
     Route: 048
     Dates: start: 20150610
  2. TYLENOL SINUS/ALLERGY (OTC) [Concomitant]
  3. ACTIFED GENERIC [Concomitant]

REACTIONS (1)
  - Drug ineffective [Unknown]

NARRATIVE: CASE EVENT DATE: 20150610
